FAERS Safety Report 8592426-X (Version None)
Quarter: 2012Q3

REPORT INFORMATION
  Report Type: 
  Country: None (occurrence: None)
  Receive Date: 20120814
  Receipt Date: 20120809
  Transmission Date: 20120928
  Serious: Yes (Hospitalization)
  Sender: FDA-Public Use
  Company Number: CA-ABBOTT-12P-028-0960207-00

PATIENT
  Age: 21 Year
  Sex: Male

DRUGS (3)
  1. HUMIRA [Suspect]
     Route: 058
     Dates: start: 20120501
  2. STEROIDS (NOS) [Concomitant]
     Indication: PRODUCT USED FOR UNKNOWN INDICATION
  3. HUMIRA [Suspect]
     Indication: CROHN'S DISEASE
     Route: 058
     Dates: start: 20090101

REACTIONS (5)
  - LARGE INTESTINAL ULCER [None]
  - PHLEBITIS SUPERFICIAL [None]
  - ANAEMIA [None]
  - BEHCET'S SYNDROME [None]
  - ERYTHEMA NODOSUM [None]
